FAERS Safety Report 26151645 (Version 1)
Quarter: 2025Q4

REPORT INFORMATION
  Report Type: Spontaneous
  Country: US (occurrence: US)
  Receive Date: 20251212
  Receipt Date: 20251212
  Transmission Date: 20260118
  Serious: No
  Sender: ABBVIE
  Company Number: US-ABBVIE-6583946

PATIENT
  Age: 17 Year
  Sex: Female

DRUGS (2)
  1. LILETTA [Suspect]
     Active Substance: LEVONORGESTREL
     Indication: Product used for unknown indication
     Dosage: TIME INTERVAL: AS NECESSARY
     Route: 015
     Dates: start: 20250311, end: 202512
  2. METRONIDAZOLE [Concomitant]
     Active Substance: METRONIDAZOLE
     Indication: Product used for unknown indication
     Dosage: 1 TABLET EVERY 12 HOURS FOR 7 DAYS WITH FOOD?500 MG TABLET
     Route: 048
     Dates: start: 20250425

REACTIONS (6)
  - Haemorrhage [Unknown]
  - Device dislocation [Recovered/Resolved]
  - Pain [Unknown]
  - Obesity [Unknown]
  - Blood pressure abnormal [Unknown]
  - Goitre [Unknown]

NARRATIVE: CASE EVENT DATE: 20250101
